FAERS Safety Report 10673875 (Version 1)
Quarter: 2014Q4

REPORT INFORMATION
  Report Type: Report from Study
  Country: PL (occurrence: PL)
  Receive Date: 20141224
  Receipt Date: 20141224
  Transmission Date: 20150529
  Serious: Yes (Hospitalization, Other)
  Sender: FDA-Public Use
  Company Number: PL-SHIRE-PL201409126

PATIENT
  Age: 6 Year
  Sex: Male

DRUGS (2)
  1. IDURSULFASE [Suspect]
     Active Substance: IDURSULFASE
     Indication: MUCOPOLYSACCHARIDOSIS II
     Dosage: UNK, UNKNOWN
     Route: 041
     Dates: start: 20110803
  2. IDURSULFASE [Suspect]
     Active Substance: IDURSULFASE
     Dosage: UNK, UNKNOWN
     Route: 041
     Dates: start: 20110727

REACTIONS (1)
  - Hearing impaired [Unknown]

NARRATIVE: CASE EVENT DATE: 20120531
